FAERS Safety Report 4357330-1 (Version None)
Quarter: 2004Q2

REPORT INFORMATION
  Report Type: 
  Country: None (occurrence: None)
  Receive Date: 20040507
  Receipt Date: 20040419
  Transmission Date: 20050107
  Serious: Yes (Death, Other)
  Sender: FDA-Public Use
  Company Number: USA030537578

PATIENT
  Sex: Male

DRUGS (1)
  1. GEMZAR [Suspect]
     Indication: LYMPHOMA

REACTIONS (2)
  - CARDIAC TAMPONADE [None]
  - PERICARDIAL EFFUSION [None]
